FAERS Safety Report 20589675 (Version 1)
Quarter: 2022Q1

REPORT INFORMATION
  Report Type: Spontaneous
  Country: US (occurrence: None)
  Receive Date: 20220311
  Receipt Date: 20220311
  Transmission Date: 20220423
  Serious: Yes (Other)
  Sender: FDA-Public Use
  Company Number: None

PATIENT

DRUGS (1)
  1. ENOXAPARIN [Suspect]
     Active Substance: ENOXAPARIN

REACTIONS (5)
  - Accidental exposure to product [None]
  - Injury associated with device [None]
  - Device safety feature issue [None]
  - Injury associated with device [None]
  - Accidental exposure to product [None]
